FAERS Safety Report 9675740 (Version 2)
Quarter: 2013Q4

REPORT INFORMATION
  Report Type: Spontaneous
  Country: US (occurrence: None)
  Receive Date: 20131105
  Receipt Date: 20131129
  Transmission Date: 20140711
  Serious: Yes (Other)
  Sender: FDA-Public Use
  Company Number: 2013-US-002673

PATIENT
  Age: 24 Year
  Sex: Female
  Weight: 63.05 kg

DRUGS (2)
  1. XYREM (SODIUM OXYBATE) ORAL SOLUTION, 500MG/ML [Suspect]
     Indication: NARCOLEPSY
     Route: 048
     Dates: start: 201303, end: 201307
  2. WELLBUTRIN (BUPROPION HYDROCHLORIDE) [Concomitant]

REACTIONS (17)
  - Gastric disorder [None]
  - Gastric operation [None]
  - Gastric bypass [None]
  - Drug intolerance [None]
  - Feeling abnormal [None]
  - Choking [None]
  - Cough [None]
  - Paralysis [None]
  - Malaise [None]
  - Migraine [None]
  - Nausea [None]
  - Dizziness [None]
  - Abdominal pain upper [None]
  - Weight decreased [None]
  - Fall [None]
  - Cataplexy [None]
  - Paralysis [None]
